FAERS Safety Report 15806582 (Version 1)
Quarter: 2019Q1

REPORT INFORMATION
  Report Type: Spontaneous
  Country: US (occurrence: US)
  Receive Date: 20190108
  Receipt Date: 20190108
  Transmission Date: 20190417
  Serious: No
  Sender: FDA-Public Use
  Company Number: None

PATIENT

DRUGS (2)
  1. TESTOSTERONE  TESTOSTERONE [Suspect]
     Active Substance: TESTOSTERONE
     Dosage: ?          OTHER STRENGTH:4 MG/GM (0.4%);?
  2. TESTOSTERONE TESTOSTERONE [Suspect]
     Active Substance: TESTOSTERONE
     Dosage: ?          OTHER STRENGTH:40 MG/GM (4%);?

REACTIONS (2)
  - Product preparation error [None]
  - Product dispensing error [None]
